FAERS Safety Report 7202753-6 (Version None)
Quarter: 2010Q4

REPORT INFORMATION
  Report Type: 
  Country: None (occurrence: None)
  Receive Date: 20101216
  Receipt Date: 20101207
  Transmission Date: 20110411
  Serious: Yes (Hospitalization)
  Sender: FDA-Public Use
  Company Number: 2010EU006570

PATIENT
  Age: 84 Year
  Sex: Female

DRUGS (11)
  1. VESICARE [Suspect]
     Dosage: 10 MG, ORAL
     Route: 048
  2. SOTALOL HCL [Suspect]
     Dosage: ORAL
     Route: 048
  3. OXYCODONE HCL [Concomitant]
  4. CITALOPRAM ACTAVIS (CITALOPRAM HYDROBROMIDE) [Concomitant]
  5. OMEPRAZOLE [Concomitant]
  6. LAKTULOS (LACTULOSE) [Concomitant]
  7. MIRTAZAPIN (MIRTAZPINE) [Concomitant]
  8. WARFARIN SODIUM [Concomitant]
  9. FUROSEMIDE [Concomitant]
  10. FLUNITRAZEPAM [Concomitant]
  11. ALLOPURINOL [Concomitant]

REACTIONS (4)
  - BRADYCARDIA [None]
  - CONVULSION [None]
  - FALL [None]
  - URINARY RETENTION [None]
